FAERS Safety Report 7630805-5 (Version None)
Quarter: 2011Q3

REPORT INFORMATION
  Report Type: 
  Country: None (occurrence: None)
  Receive Date: 20110723
  Receipt Date: 20110715
  Transmission Date: 20111222
  Serious: Yes (Disabling, Other)
  Sender: FDA-Public Use
  Company Number: US-ABBOTT-11P-163-0839405-00

PATIENT
  Age: 66 Year
  Sex: Male
  Weight: 125.3 kg

DRUGS (8)
  1. KLOR-CON M20 [Concomitant]
     Indication: MINERAL SUPPLEMENTATION
     Route: 048
  2. PLAVIX [Concomitant]
     Indication: ANTICOAGULANT THERAPY
     Route: 048
  3. LISINOPRIL [Concomitant]
     Indication: HYPERTENSION
  4. LOVASTATIN [Concomitant]
     Indication: PRODUCT USED FOR UNKNOWN INDICATION
     Route: 048
  5. FUROSEMIDE [Concomitant]
     Indication: DIURETIC THERAPY
     Route: 048
  6. CLONIDINE [Concomitant]
     Indication: PRODUCT USED FOR UNKNOWN INDICATION
     Route: 048
  7. NIASPAN [Suspect]
     Indication: BLOOD CHOLESTEROL INCREASED
     Route: 048
  8. GLUCOTROL [Suspect]
     Indication: DIABETES MELLITUS
     Route: 048

REACTIONS (5)
  - DEAFNESS [None]
  - PRURITUS [None]
  - HYPERTENSION [None]
  - CARDIAC OPERATION [None]
  - PARAESTHESIA [None]
